FAERS Safety Report 10164167 (Version 1)
Quarter: 2014Q2

REPORT INFORMATION
  Report Type: Spontaneous
  Country: US (occurrence: US)
  Receive Date: 20140510
  Receipt Date: 20140510
  Transmission Date: 20141212
  Serious: No
  Sender: FDA-Public Use
  Company Number: US-BRISTOL-MYERS SQUIBB COMPANY-19963081

PATIENT
  Age: 67 Year
  Sex: Female
  Weight: 82.99 kg

DRUGS (5)
  1. BYETTA PEN DISPOSABLE [Suspect]
  2. INSULIN [Suspect]
  3. HUMULIN N [Concomitant]
     Dosage: 1DF:100 UNIT NOS
  4. BENICAR [Concomitant]
  5. PRILOSEC [Concomitant]

REACTIONS (1)
  - Vision blurred [Unknown]
